FAERS Safety Report 7895048-9 (Version None)
Quarter: 2011Q4

REPORT INFORMATION
  Report Type: 
  Country: None (occurrence: None)
  Receive Date: 20111102
  Receipt Date: 20111026
  Transmission Date: 20120403
  Serious: Yes (Hospitalization)
  Sender: FDA-Public Use
  Company Number: 1000024308

PATIENT
  Age: 74 Year
  Sex: Male
  Weight: 73.94 kg

DRUGS (1)
  1. DALIRESP [Suspect]
     Indication: CHRONIC OBSTRUCTIVE PULMONARY DISEASE
     Dates: end: 20110923

REACTIONS (5)
  - ANXIETY [None]
  - EMPHYSEMA [None]
  - RESPIRATORY FAILURE [None]
  - DYSPNOEA [None]
  - PSYCHOTIC DISORDER [None]
